FAERS Safety Report 8225000-5 (Version None)
Quarter: 2012Q1

REPORT INFORMATION
  Report Type: 
  Country: None (occurrence: None)
  Receive Date: 20120321
  Receipt Date: 20120319
  Transmission Date: 20120608
  Serious: Yes (Other)
  Sender: FDA-Public Use
  Company Number: US-ROCHE-1021914

PATIENT
  Sex: Male
  Weight: 52.21 kg

DRUGS (2)
  1. ACCUTANE [Suspect]
     Indication: ACNE
     Dates: start: 19970101, end: 19990101
  2. ACCUTANE [Suspect]
     Dates: start: 19990101, end: 20000101

REACTIONS (10)
  - DEPRESSION [None]
  - FEAR [None]
  - CROHN'S DISEASE [None]
  - COLITIS ULCERATIVE [None]
  - ANXIETY [None]
  - EMOTIONAL DISORDER [None]
  - INFLAMMATORY BOWEL DISEASE [None]
  - WEIGHT DECREASED [None]
  - GASTRIC DISORDER [None]
  - IRRITABLE BOWEL SYNDROME [None]
